FAERS Safety Report 7788028-5 (Version None)
Quarter: 2011Q3

REPORT INFORMATION
  Report Type: 
  Country: None (occurrence: None)
  Receive Date: 20110927
  Receipt Date: 20110913
  Transmission Date: 20111222
  Serious: Yes (Hospitalization, Other)
  Sender: FDA-Public Use
  Company Number: 2011HGS-002493

PATIENT
  Age: 60 Year
  Sex: Female

DRUGS (2)
  1. BENLYSTA [Suspect]
     Indication: SYSTEMIC LUPUS ERYTHEMATOSUS
     Dosage: INTRAVENOUS DRIP
     Route: 041
     Dates: start: 20110101, end: 20110101
  2. PREDNISOLON (PREDNISOLONE) (PREDNISOLONE) [Concomitant]

REACTIONS (2)
  - ANGINA PECTORIS [None]
  - INFUSION RELATED REACTION [None]
